FAERS Safety Report 7171852-X (Version None)
Quarter: 2010Q4

REPORT INFORMATION
  Report Type: 
  Country: None (occurrence: None)
  Receive Date: 20101217
  Receipt Date: 20100127
  Transmission Date: 20110411
  Serious: No
  Sender: FDA-Public Use
  Company Number: US-AMGEN-KDL388957

PATIENT

DRUGS (3)
  1. ENBREL [Suspect]
     Indication: RHEUMATOID ARTHRITIS
     Dosage: 25 MG, 2 TIMES/WK
     Route: 058
  2. HYDROXYCHLOROQUINE SULFATE [Concomitant]
     Dosage: 200 MG, QD
     Route: 048
  3. METHOTREXATE [Concomitant]
     Dosage: UNK UNK, UNK

REACTIONS (4)
  - EAR INFECTION [None]
  - FIBROMYALGIA [None]
  - HAIR GROWTH ABNORMAL [None]
  - SINUSITIS [None]
